FAERS Safety Report 5673577-6 (Version None)
Quarter: 2008Q1

REPORT INFORMATION
  Report Type: 
  Country: None (occurrence: None)
  Receive Date: 20080319
  Receipt Date: 20080306
  Transmission Date: 20080703
  Serious: Yes (Hospitalization)
  Sender: FDA-Public Use
  Company Number: MX-BOEHRINGER INGELHEIM GMBH, GERMANY-2008-BP-03583MX

PATIENT
  Age: 81 Year
  Sex: Male
  Weight: 58 kg

DRUGS (5)
  1. SECOTEX [Suspect]
     Indication: URINARY RETENTION
     Route: 048
     Dates: start: 20071213, end: 20080101
  2. FORTUM [Concomitant]
     Indication: ANTIBIOTIC PROPHYLAXIS
  3. FLOXSTAT [Concomitant]
     Indication: ANTIBIOTIC PROPHYLAXIS
  4. CIPROXIN [Concomitant]
     Indication: ANTIBIOTIC PROPHYLAXIS
  5. CLAVANT [Concomitant]
     Indication: ANTIBIOTIC PROPHYLAXIS

REACTIONS (1)
  - DRUG INEFFECTIVE FOR UNAPPROVED INDICATION [None]
